FAERS Safety Report 8985952 (Version 1)
Quarter: 2012Q4

REPORT INFORMATION
  Report Type: 
  Country: DE (occurrence: DE)
  Receive Date: 20121226
  Receipt Date: 20121226
  Transmission Date: 20130627
  Serious: Yes (Other)
  Sender: FDA-Public Use
  Company Number: DE-PFIZER INC-2012322962

PATIENT
  Sex: Female
  Weight: 77 kg

DRUGS (6)
  1. ATORVASTATIN CALCIUM [Suspect]
     Indication: CRAMPS
     Dosage: 20 mg, 1x/day
     Route: 048
     Dates: start: 201205
  2. INEGY [Suspect]
     Indication: MUSCLE PAIN
     Dosage: 10/80, (no units provided), once daily
     Route: 048
     Dates: start: 201108
  3. FLUVASTATIN [Suspect]
     Indication: MUSCLE PAIN
     Dosage: UNK
     Route: 048
     Dates: start: 201109
  4. BEZAFIBRATE [Suspect]
     Indication: CRAMPS
     Dosage: 400 (no units provided) once daily
     Route: 048
     Dates: start: 201204
  5. TREDAPTIVE [Suspect]
     Indication: STOMACH PAIN
     Dosage: 1 DF, 1x/day
     Route: 048
     Dates: start: 201209
  6. EZETROL [Suspect]
     Indication: STOMACH PAIN
     Dosage: 1 DF, 1x/day
     Route: 048
     Dates: start: 201209

REACTIONS (4)
  - Gastrointestinal disorder [Recovered/Resolved]
  - Musculoskeletal discomfort [Recovered/Resolved]
  - Gamma-glutamyltransferase increased [Unknown]
  - Off label use [Unknown]
